FAERS Safety Report 8560545-X (Version None)
Quarter: 2012Q2

REPORT INFORMATION
  Report Type: 
  Country: None (occurrence: None)
  Receive Date: 20120418
  Receipt Date: 20090226
  Transmission Date: 20120825
  Serious: Yes (Other)
  Sender: FDA-Public Use
  Company Number: PHEH2009US02115

PATIENT
  Sex: Female

DRUGS (2)
  1. ELIDEL [Suspect]
     Dosage: TOPICAL
     Route: 061
     Dates: start: 20020901, end: 20070801
  2. PROTOPIC [Suspect]
     Dosage: TOPICAL
     Route: 061
     Dates: start: 20020901, end: 20070801

REACTIONS (2)
  - INJURY [None]
  - HODGKIN'S DISEASE [None]
